FAERS Safety Report 7187249-2 (Version None)
Quarter: 2010Q4

REPORT INFORMATION
  Report Type: 
  Country: None (occurrence: None)
  Receive Date: 20101222
  Receipt Date: 20101210
  Transmission Date: 20110411
  Serious: Yes (Hospitalization)
  Sender: FDA-Public Use
  Company Number: BR-GENENTECH-310847

PATIENT
  Sex: Male
  Weight: 23 kg

DRUGS (5)
  1. PULMOZYME [Suspect]
     Indication: CYSTIC FIBROSIS
     Dosage: 1 MG/ML, UNK
     Route: 065
     Dates: start: 20070101
  2. SERETIDE [Concomitant]
     Indication: RHINITIS ALLERGIC
     Dosage: 150 A?G, UNK
  3. VITAMIN A [Concomitant]
     Indication: FIBROSIS
     Dosage: UNK
  4. AVAMYS [Concomitant]
     Indication: RHINITIS ALLERGIC
     Dosage: UNK
  5. MEDICATION (UNK INGREDIENT) [Concomitant]
     Indication: PANCREATIC INSUFFICIENCY
     Dosage: 9 UNK, QD
     Dates: start: 20040101

REACTIONS (2)
  - GASTROOESOPHAGEAL REFLUX DISEASE [None]
  - LUNG INFECTION [None]
